FAERS Safety Report 9737193 (Version 4)
Quarter: 2014Q3

REPORT INFORMATION
  Report Type: Spontaneous
  Country: CA (occurrence: CA)
  Receive Date: 20131206
  Receipt Date: 20140814
  Transmission Date: 20150326
  Serious: Yes (Other)
  Sender: FDA-Public Use
  Company Number: CA-ROCHE-1311894

PATIENT
  Age: 53 Year
  Sex: Female

DRUGS (7)
  1. XOLAIR [Suspect]
     Active Substance: OMALIZUMAB
     Route: 058
     Dates: start: 20140807
  2. XOLAIR [Suspect]
     Active Substance: OMALIZUMAB
     Indication: ASTHMA
     Route: 058
     Dates: start: 20130510
  3. XOLAIR [Suspect]
     Active Substance: OMALIZUMAB
     Route: 058
     Dates: start: 20140206
  4. PREDNISONE. [Concomitant]
     Active Substance: PREDNISONE
  5. XOLAIR [Suspect]
     Active Substance: OMALIZUMAB
     Route: 058
     Dates: start: 20131030
  6. NASONEX [Concomitant]
     Active Substance: MOMETASONE FUROATE
  7. XOLAIR [Suspect]
     Active Substance: OMALIZUMAB
     Route: 058
     Dates: start: 20131127

REACTIONS (11)
  - Rales [Unknown]
  - Hypoaesthesia [Unknown]
  - Dizziness [Unknown]
  - Blood pressure systolic increased [Not Recovered/Not Resolved]
  - Discomfort [Unknown]
  - Body temperature decreased [Unknown]
  - Lower respiratory tract infection [Unknown]
  - Carpal tunnel syndrome [Recovering/Resolving]
  - Sinusitis [Unknown]
  - Wheezing [Recovering/Resolving]
  - Breath sounds abnormal [Unknown]

NARRATIVE: CASE EVENT DATE: 20130802
